FAERS Safety Report 10171464 (Version 4)
Quarter: 2016Q4

REPORT INFORMATION
  Report Type: Spontaneous
  Country: US (occurrence: US)
  Receive Date: 20140514
  Receipt Date: 20161102
  Transmission Date: 20170206
  Serious: Yes (Hospitalization, Disabling, Other)
  Sender: FDA-Public Use
  Company Number: US-009507513-1104USA01933

PATIENT
  Sex: Female
  Weight: 83.46 kg

DRUGS (8)
  1. FOSAMAX [Suspect]
     Active Substance: ALENDRONATE SODIUM
     Indication: OSTEOPENIA
     Dosage: 5 MG, QD
     Route: 048
     Dates: start: 19991018
  2. FOSAMAX [Suspect]
     Active Substance: ALENDRONATE SODIUM
     Dosage: 10 MG, QD
     Route: 048
     Dates: start: 200001
  3. FOSAMAX [Suspect]
     Active Substance: ALENDRONATE SODIUM
     Indication: OSTEOPENIA
  4. FOSAMAX [Suspect]
     Active Substance: ALENDRONATE SODIUM
     Indication: OSTEOPOROSIS
     Dosage: 70 MG, QW
     Route: 048
     Dates: start: 19990325, end: 20101102
  5. NEXIUM [Concomitant]
     Active Substance: ESOMEPRAZOLE MAGNESIUM
     Indication: DYSPHAGIA
     Dates: start: 1997
  6. NEXIUM [Concomitant]
     Active Substance: ESOMEPRAZOLE MAGNESIUM
     Indication: HICCUPS
  7. FOSAMAX [Suspect]
     Active Substance: ALENDRONATE SODIUM
     Dosage: 35 MG, UNK
     Route: 048
     Dates: start: 20100417
  8. FOSAMAX [Suspect]
     Active Substance: ALENDRONATE SODIUM
     Indication: OSTEOPOROSIS
     Dosage: 70 MG, UNK
     Route: 048
     Dates: start: 20080805, end: 20100223

REACTIONS (97)
  - Anaemia [Unknown]
  - Fall [Unknown]
  - Low turnover osteopathy [Unknown]
  - Renal function test abnormal [Unknown]
  - Cystocele [Unknown]
  - Hypocoagulable state [Unknown]
  - Spondylolisthesis [Unknown]
  - Muscle strain [Unknown]
  - Dizziness postural [Unknown]
  - Weight increased [Unknown]
  - Polymyalgia rheumatica [Unknown]
  - Hyperhidrosis [Unknown]
  - Gastrooesophageal reflux disease [Unknown]
  - Lumbar vertebral fracture [Unknown]
  - Wound infection [Recovering/Resolving]
  - Anxiety [Unknown]
  - Arthralgia [Unknown]
  - Diastolic dysfunction [Unknown]
  - Cataract operation [Unknown]
  - Foot fracture [Unknown]
  - Arthritis [Unknown]
  - Fall [Unknown]
  - Balance disorder [Unknown]
  - Inflammatory bowel disease [Unknown]
  - Device failure [Unknown]
  - Osteogenesis imperfecta [Unknown]
  - Fungal infection [Unknown]
  - Bronchitis [Unknown]
  - Cellulitis [Unknown]
  - Weight increased [Unknown]
  - Intervertebral disc degeneration [Unknown]
  - Chest pain [Unknown]
  - Chronic sinusitis [Unknown]
  - Cholelithiasis [Unknown]
  - Femur fracture [Recovered/Resolved]
  - Deep vein thrombosis [Unknown]
  - Osteoarthritis [Unknown]
  - Fracture delayed union [Unknown]
  - Blood glucose increased [Unknown]
  - Sarcoidosis [Not Recovered/Not Resolved]
  - Gamma-glutamyltransferase increased [Unknown]
  - Facial paralysis [Unknown]
  - Diverticulitis [Unknown]
  - Dysphagia [Unknown]
  - Asthenia [Unknown]
  - Iron deficiency anaemia [Not Recovered/Not Resolved]
  - Haematuria [Unknown]
  - Fatigue [Unknown]
  - Depression [Not Recovered/Not Resolved]
  - Enterocolitis [Unknown]
  - Hyponatraemia [Unknown]
  - Liver function test abnormal [Unknown]
  - Polyarthritis [Unknown]
  - Foot fracture [Unknown]
  - Foot fracture [Unknown]
  - Blood creatinine increased [Unknown]
  - Pelvic fracture [Unknown]
  - Tooth disorder [Unknown]
  - Carpal tunnel syndrome [Unknown]
  - Haematuria [Unknown]
  - Carotid bruit [Unknown]
  - Spinal osteoarthritis [Unknown]
  - Fall [Unknown]
  - Coagulopathy [Unknown]
  - Stress [Unknown]
  - Stasis dermatitis [Unknown]
  - Arthropathy [Unknown]
  - Cardiac failure congestive [Unknown]
  - Femur fracture [Unknown]
  - Gastrointestinal disorder [Unknown]
  - Mitral valve prolapse [Unknown]
  - Hypertensive heart disease [Unknown]
  - Ankle fracture [Unknown]
  - Foot deformity [Unknown]
  - Fibromyalgia [Unknown]
  - Gait disturbance [Unknown]
  - Arthralgia [Unknown]
  - Diarrhoea [Unknown]
  - Back pain [Not Recovered/Not Resolved]
  - Renal failure [Unknown]
  - Fracture nonunion [Unknown]
  - Hip fracture [Unknown]
  - Hypoacusis [Unknown]
  - Vaginal discharge [Unknown]
  - Hypertension [Unknown]
  - Cardiac murmur [Unknown]
  - Tricuspid valve incompetence [Unknown]
  - Flank pain [Unknown]
  - Facial paralysis [Recovered/Resolved]
  - Herpes zoster [Unknown]
  - Calcium deficiency [Unknown]
  - Vitamin D deficiency [Unknown]
  - Hyperkalaemia [Unknown]
  - Dyspnoea exertional [Unknown]
  - Rib fracture [Unknown]
  - Blood potassium decreased [Unknown]
  - Cough [Unknown]

NARRATIVE: CASE EVENT DATE: 19990517
